FAERS Safety Report 7093967-7 (Version None)
Quarter: 2010Q4

REPORT INFORMATION
  Report Type: 
  Country: None (occurrence: None)
  Receive Date: 20101101
  Receipt Date: 20101019
  Transmission Date: 20110411
  Serious: Yes (Hospitalization, Other)
  Sender: FDA-Public Use
  Company Number: 731233

PATIENT
  Age: 65 Year
  Sex: Female

DRUGS (3)
  1. OXALIPLATIN [Suspect]
     Indication: COLON CANCER
     Dosage: 20 ML MILLILITRE(S), INTRAVENOUS
     Route: 042
     Dates: start: 20100714, end: 20100714
  2. CAPECITABINE [Concomitant]
  3. LANSOPRAZOLE [Concomitant]

REACTIONS (7)
  - AGITATION [None]
  - ANXIETY [None]
  - BLOOD PRESSURE DECREASED [None]
  - FAECAL INCONTINENCE [None]
  - PRURITUS [None]
  - SWOLLEN TONGUE [None]
  - VOMITING [None]
